FAERS Safety Report 25969375 (Version 1)
Quarter: 2025Q4

REPORT INFORMATION
  Report Type: Spontaneous
  Country: US (occurrence: None)
  Receive Date: 20251027
  Receipt Date: 20251027
  Transmission Date: 20260118
  Serious: Yes (Other)
  Sender: FDA-CTU
  Company Number: None

PATIENT
  Age: 47 Year
  Sex: Female
  Weight: 73.8 kg

DRUGS (14)
  1. GAMUNEX-C [Suspect]
     Active Substance: HUMAN IMMUNOGLOBULIN G
     Indication: Immunodeficiency
     Dosage: OTHER FREQUENCY : ONCE A MONTH;?
     Route: 042
     Dates: start: 20250317, end: 20251010
  2. HYDROCODONE [Concomitant]
     Active Substance: HYDROCODONE
  3. KLONOPIN [Concomitant]
     Active Substance: CLONAZEPAM
  4. PREGABALIN [Concomitant]
     Active Substance: PREGABALIN
  5. VILAZODONE [Concomitant]
     Active Substance: VILAZODONE
  6. PRAZOSIN [Concomitant]
     Active Substance: PRAZOSIN
  7. AMITRIPTYLINE [Concomitant]
     Active Substance: AMITRIPTYLINE
  8. IRON [Concomitant]
     Active Substance: IRON
  9. VYVANSE [Concomitant]
     Active Substance: LISDEXAMFETAMINE DIMESYLATE
  10. nausea med [Concomitant]
  11. DICYCLOMINE [Concomitant]
     Active Substance: DICYCLOMINE HYDROCHLORIDE
  12. COLACE [Concomitant]
     Active Substance: DOCUSATE SODIUM
  13. FIBER THERAPY (CALCIUM POLYCARBOPHIL) [Concomitant]
     Active Substance: CALCIUM POLYCARBOPHIL
  14. prebiotic [Concomitant]

REACTIONS (9)
  - Abdominal pain upper [None]
  - Anxiety [None]
  - Diarrhoea [None]
  - Feeling abnormal [None]
  - Suicide attempt [None]
  - Decreased appetite [None]
  - Nausea [None]
  - Drug ineffective [None]
  - Infusion related reaction [None]

NARRATIVE: CASE EVENT DATE: 20250319
